FAERS Safety Report 6826023-0 (Version None)
Quarter: 2010Q3

REPORT INFORMATION
  Report Type: 
  Country: None (occurrence: None)
  Receive Date: 20100706
  Receipt Date: 20100623
  Transmission Date: 20110219
  Serious: Yes (Hospitalization)
  Sender: FDA-Public Use
  Company Number: 011990

PATIENT
  Sex: Female
  Weight: 45.8 kg

DRUGS (5)
  1. CIMZIA [Suspect]
     Indication: CROHN'S DISEASE
     Dosage: SUBCUTANEOUS
     Route: 058
     Dates: end: 20100407
  2. PREDNISONE [Concomitant]
  3. TOPROL-XL [Concomitant]
  4. FOLIC ACID [Concomitant]
  5. FORTEO [Concomitant]

REACTIONS (3)
  - INFECTION [None]
  - PNEUMONIA [None]
  - THERAPY CESSATION [None]
